FAERS Safety Report 8954581 (Version 1)
Quarter: 2012Q4

REPORT INFORMATION
  Report Type: Spontaneous
  Country: US (occurrence: None)
  Receive Date: 20121205
  Receipt Date: 20121205
  Transmission Date: 20130627
  Serious: Yes (Other)
  Sender: FDA-Public Use
  Company Number: None

PATIENT
  Age: 60 Year
  Sex: Female
  Weight: 133.81 kg

DRUGS (1)
  1. MONTELUKAST SODIUM 10 MG SANDOZ [Suspect]
     Indication: ASTHMA
     Dosage: 10 mg 1 qd po
     Route: 048
     Dates: start: 20121001, end: 20121127

REACTIONS (4)
  - Asthma [None]
  - Hypersensitivity [None]
  - Drug ineffective [None]
  - Product substitution issue [None]
